FAERS Safety Report 17036921 (Version 60)
Quarter: 2025Q4

REPORT INFORMATION
  Report Type: Spontaneous
  Country: IL (occurrence: IL)
  Receive Date: 20191115
  Receipt Date: 20251017
  Transmission Date: 20260117
  Serious: Yes (Hospitalization, Other)
  Sender: PFIZER
  Company Number: IL-PFIZER INC-2018312739

PATIENT
  Age: 62 Year
  Sex: Male

DRUGS (29)
  1. ELELYSO [Suspect]
     Active Substance: TALIGLUCERASE ALFA
     Indication: Gaucher^s disease
     Dosage: 2800 IU, TWICE A MONTH
     Route: 042
     Dates: start: 2013
  2. ELELYSO [Suspect]
     Active Substance: TALIGLUCERASE ALFA
     Dosage: 2800 IU, TWICE A MONTH INTERMITTENTLY
     Route: 042
     Dates: start: 2013
  3. ELELYSO [Suspect]
     Active Substance: TALIGLUCERASE ALFA
     Dosage: 2800 IU (200 IU, 14 VIALS), TWICE A MONTH
     Route: 042
     Dates: start: 20160301, end: 20160301
  4. ELELYSO [Suspect]
     Active Substance: TALIGLUCERASE ALFA
     Dosage: 2800 IU, TWICE A MONTH
     Route: 042
  5. ELELYSO [Suspect]
     Active Substance: TALIGLUCERASE ALFA
     Dosage: 2800 IU, TWICE A MONTH
     Route: 042
  6. ELELYSO [Suspect]
     Active Substance: TALIGLUCERASE ALFA
     Dosage: 2800 IU, TWICE A MONTH
     Route: 042
  7. ELELYSO [Suspect]
     Active Substance: TALIGLUCERASE ALFA
     Dosage: 2800 IU, TWICE A MONTH ALTERNATELY
     Route: 042
  8. ELELYSO [Suspect]
     Active Substance: TALIGLUCERASE ALFA
     Dosage: 2800 IU, TWICE A MONTH ALTERNATELY
     Route: 042
  9. ELELYSO [Suspect]
     Active Substance: TALIGLUCERASE ALFA
     Dosage: 2800 IU, TWICE A MONTH ALTERNATELY
     Route: 042
  10. ELELYSO [Suspect]
     Active Substance: TALIGLUCERASE ALFA
     Dosage: 200 IU, 14 VIALS EO /2WEEKS
     Route: 042
     Dates: start: 20160301, end: 20160301
  11. ELELYSO [Suspect]
     Active Substance: TALIGLUCERASE ALFA
     Dosage: 200 IU (14 VIALS)
     Route: 042
     Dates: start: 20160301, end: 20160301
  12. ELELYSO [Suspect]
     Active Substance: TALIGLUCERASE ALFA
     Dosage: 2800 IU, TWICE A MONTH INTERMITTENTLY
     Route: 042
  13. ELELYSO [Suspect]
     Active Substance: TALIGLUCERASE ALFA
     Dosage: 2800 IU, TWICE A MONTH ALTERNATELY
     Route: 042
  14. ELELYSO [Suspect]
     Active Substance: TALIGLUCERASE ALFA
     Dosage: 2800 IU, TWICE A MONTH ALTERNATELY
     Route: 042
  15. ELELYSO [Suspect]
     Active Substance: TALIGLUCERASE ALFA
     Dosage: 2800 IU, TWICE A MONTH ALTERNATELY
     Route: 042
  16. ELELYSO [Suspect]
     Active Substance: TALIGLUCERASE ALFA
     Dosage: 2800 IU, TWICE A MONTH
     Route: 042
  17. ELELYSO [Suspect]
     Active Substance: TALIGLUCERASE ALFA
     Dosage: 2800 IU, TWICE A MONTH
     Route: 042
  18. ELELYSO [Suspect]
     Active Substance: TALIGLUCERASE ALFA
     Dosage: 2800 IU,  14 VIALS, EVERY TWO WEEKS
     Route: 042
  19. ELELYSO [Suspect]
     Active Substance: TALIGLUCERASE ALFA
     Dosage: 2800 IU, 14 VIALS, EVERY TWO WEEKS
     Route: 042
  20. ELELYSO [Suspect]
     Active Substance: TALIGLUCERASE ALFA
     Dosage: 2800 IU, 14 VIALS, EVERY OTHER WEEK
     Route: 042
  21. ELELYSO [Suspect]
     Active Substance: TALIGLUCERASE ALFA
     Dosage: 2800 IU, 14 VIALS
     Route: 042
  22. ELELYSO [Suspect]
     Active Substance: TALIGLUCERASE ALFA
     Dosage: 2800 IU, INFUSION TWICE MONTHLY OF 14 VIALS
     Route: 042
  23. ELELYSO [Suspect]
     Active Substance: TALIGLUCERASE ALFA
     Dosage: 2800 IU, 14VIALS
     Route: 042
  24. ELELYSO [Suspect]
     Active Substance: TALIGLUCERASE ALFA
     Dosage: 2800 IU, 14 VIALS/2 MONTH
     Route: 042
     Dates: start: 20241007
  25. ELELYSO [Suspect]
     Active Substance: TALIGLUCERASE ALFA
     Dosage: 2800 IU, 14 VIALS
     Route: 042
     Dates: start: 20241027
  26. ELELYSO [Suspect]
     Active Substance: TALIGLUCERASE ALFA
     Dosage: 14 VIALS/2 MONTH
     Route: 042
     Dates: start: 20250703, end: 20250703
  27. ELELYSO [Suspect]
     Active Substance: TALIGLUCERASE ALFA
     Dosage: 14 VIALS/2 MONTH
     Route: 042
     Dates: start: 20250921, end: 20250921
  28. ELELYSO [Suspect]
     Active Substance: TALIGLUCERASE ALFA
     Dosage: 14 VIALS
     Route: 042
     Dates: start: 20251015, end: 20251015
  29. ESCITALOPRAM OXALATE [Concomitant]
     Active Substance: ESCITALOPRAM OXALATE
     Dosage: UNK

REACTIONS (27)
  - Atrial fibrillation [Recovered/Resolved]
  - Hypertension [Unknown]
  - Chest discomfort [Not Recovered/Not Resolved]
  - Chest pain [Unknown]
  - Vitreous detachment [Unknown]
  - Pneumonia [Recovering/Resolving]
  - Prostate cancer [Unknown]
  - Choking sensation [Recovering/Resolving]
  - Dyspnoea [Recovering/Resolving]
  - Panic attack [Recovering/Resolving]
  - Oedema peripheral [Unknown]
  - Weight increased [Unknown]
  - Somnolence [Unknown]
  - Visual impairment [Unknown]
  - Foreign body in eye [Unknown]
  - Gastrointestinal disorder [Unknown]
  - Blood test abnormal [Unknown]
  - Renal cyst [Unknown]
  - Gout [Unknown]
  - Pain [Unknown]
  - Anxiety [Unknown]
  - Myopathy [Unknown]
  - Platelet count decreased [Unknown]
  - Product container issue [Unknown]
  - Incorrect dose administered [Unknown]
  - COVID-19 [Recovered/Resolved]
  - Dysuria [Unknown]

NARRATIVE: CASE EVENT DATE: 20180802
